FAERS Safety Report 25077863 (Version 2)
Quarter: 2025Q1

REPORT INFORMATION
  Report Type: Spontaneous
  Country: CN (occurrence: CN)
  Receive Date: 20250314
  Receipt Date: 20250326
  Transmission Date: 20250409
  Serious: Yes (Hospitalization, Other)
  Sender: MERCK KGAA
  Company Number: CN-Merck Healthcare KGaA-2025011789

PATIENT
  Age: 5 Year
  Sex: Male
  Weight: 21 kg

DRUGS (1)
  1. EUTHYROX [Suspect]
     Active Substance: LEVOTHYROXINE SODIUM
     Indication: Hypothyroidism
     Dosage: AFTER MEALS. VALIDITY PERIOD WAS 11-AUG-2027
     Route: 048
     Dates: start: 20250205, end: 20250227

REACTIONS (13)
  - Seizure [Recovered/Resolved]
  - Overdose [Unknown]
  - Arthralgia [Recovered/Resolved]
  - Rhinorrhoea [Unknown]
  - Sneezing [Unknown]
  - Feeling cold [Unknown]
  - Headache [Recovered/Resolved]
  - Nausea [Recovered/Resolved]
  - Hyperhidrosis [Recovered/Resolved]
  - Epistaxis [Unknown]
  - Condition aggravated [Unknown]
  - Treatment noncompliance [Recovered/Resolved]
  - Inappropriate schedule of product administration [Recovered/Resolved]

NARRATIVE: CASE EVENT DATE: 20250205
